FAERS Safety Report 11079748 (Version 2)
Quarter: 2015Q2

REPORT INFORMATION
  Report Type: Spontaneous
  Country: US (occurrence: US)
  Receive Date: 20150430
  Receipt Date: 20150609
  Transmission Date: 20150821
  Serious: Yes (Other)
  Sender: FDA-Public Use
  Company Number: US-ASTRAZENECA-2015SE39490

PATIENT
  Age: 743 Month
  Sex: Female
  Weight: 79 kg

DRUGS (5)
  1. MULTIVITAMIN [Concomitant]
     Active Substance: VITAMINS
  2. ZYPREXA [Concomitant]
     Active Substance: OLANZAPINE
  3. LYNPARZA [Suspect]
     Active Substance: OLAPARIB
     Indication: OVARIAN CANCER STAGE IV
     Dates: start: 201503
  4. LYNPARZA [Suspect]
     Active Substance: OLAPARIB
     Indication: OVARIAN CANCER STAGE IV
     Dosage: REDUCED DAILY LYNPARZA DOSE
     Dates: start: 20150416
  5. STOOL SOFTENER [Concomitant]
     Active Substance: DOCUSATE CALCIUM

REACTIONS (5)
  - Aphasia [Recovered/Resolved]
  - Mental status changes [Recovered/Resolved]
  - Visual impairment [Unknown]
  - Intentional product use issue [Unknown]
  - Cognitive disorder [Not Recovered/Not Resolved]

NARRATIVE: CASE EVENT DATE: 201503
